FAERS Safety Report 26025829 (Version 1)
Quarter: 2025Q4

REPORT INFORMATION
  Report Type: Spontaneous
  Country: US (occurrence: US)
  Receive Date: 20251111
  Receipt Date: 20251111
  Transmission Date: 20260119
  Serious: Yes (Hospitalization, Other)
  Sender: BAYER HEALTHCARE PHARMACEUTICALS INC.
  Company Number: US-BAYER-2025A147928

PATIENT
  Age: 56 Year
  Sex: Male
  Weight: 79.7 kg

DRUGS (26)
  1. CIPRO [Suspect]
     Active Substance: CIPROFLOXACIN HYDROCHLORIDE
     Indication: Gastritis
     Dosage: 500 MG, BID
     Route: 048
     Dates: start: 20250311, end: 20250321
  2. TREPROSTINIL SODIUM [Suspect]
     Active Substance: TREPROSTINIL SODIUM
     Indication: Pulmonary arterial hypertension
     Dosage: UNK
  3. TREPROSTINIL SODIUM [Suspect]
     Active Substance: TREPROSTINIL SODIUM
     Indication: Pulmonary arterial hypertension
     Dosage: UNK
  4. TREPROSTINIL SODIUM [Suspect]
     Active Substance: TREPROSTINIL SODIUM
     Indication: Pulmonary arterial hypertension
     Dosage: UNK
     Dates: start: 202103
  5. ADCIRCA [Suspect]
     Active Substance: TADALAFIL
     Indication: Pulmonary arterial hypertension
     Route: 048
  6. DUPIXENT [Suspect]
     Active Substance: DUPILUMAB
  7. LETAIRIS [Suspect]
     Active Substance: AMBRISENTAN
     Indication: Pulmonary arterial hypertension
     Dosage: 10 MG, QD
  8. FAMOTIDINE [Suspect]
     Active Substance: FAMOTIDINE
     Indication: Gastritis
     Route: 042
  9. PROTONIX [Suspect]
     Active Substance: PANTOPRAZOLE SODIUM
     Indication: Gastritis
     Route: 042
  10. OLOPATADINE [Suspect]
     Active Substance: OLOPATADINE
     Route: 045
  11. XHANCE [Suspect]
     Active Substance: FLUTICASONE PROPIONATE
     Route: 045
  12. REMODULIN [Suspect]
     Active Substance: TREPROSTINIL
     Route: 042
  13. MIRALAX [Suspect]
     Active Substance: POLYETHYLENE GLYCOL 3350
     Dosage: UNK UNK, BID
  14. EPINEPHRINE [Concomitant]
     Active Substance: EPINEPHRINE
     Route: 030
  15. SERALUTINIB [Concomitant]
     Active Substance: SERALUTINIB
     Dosage: UNK
     Dates: start: 202503
  16. METHYLPREDNISOLONE [Concomitant]
     Active Substance: METHYLPREDNISOLONE
     Route: 042
  17. BENADRYL [Concomitant]
     Active Substance: DIPHENHYDRAMINE HYDROCHLORIDE
     Route: 042
  18. ACETAMINOPHEN [Concomitant]
     Active Substance: ACETAMINOPHEN
  19. ZOFRAN [Concomitant]
     Active Substance: ONDANSETRON HYDROCHLORIDE
     Indication: Hypotension
     Route: 042
  20. ZOFRAN [Concomitant]
     Active Substance: ONDANSETRON HYDROCHLORIDE
     Indication: Pyrexia
  21. ZOFRAN [Concomitant]
     Active Substance: ONDANSETRON HYDROCHLORIDE
     Indication: Nausea
  22. VANCOMYCIN [Concomitant]
     Active Substance: VANCOMYCIN
     Route: 042
  23. CEFEPIME [Concomitant]
     Active Substance: CEFEPIME HYDROCHLORIDE
  24. LASIX [Concomitant]
     Active Substance: FUROSEMIDE
  25. IRON [Concomitant]
     Active Substance: IRON
     Route: 048
  26. TRELEGY ELLIPTA [Concomitant]
     Active Substance: FLUTICASONE FUROATE\UMECLIDINIUM BROMIDE\VILANTEROL TRIFENATATE

REACTIONS (24)
  - Gastritis [Recovering/Resolving]
  - Pneumonia aspiration [None]
  - Corynebacterium sepsis [None]
  - Anaphylactic reaction [Recovered/Resolved]
  - Heart failure with preserved ejection fraction [None]
  - Tricuspid valve thickening [None]
  - Tricuspid valve incompetence [None]
  - Pulmonary valve incompetence [None]
  - Mitral valve incompetence [None]
  - Mitral valve thickening [None]
  - Polyp [None]
  - Neoplasm [None]
  - Rectal neoplasm [None]
  - Hypoxia [None]
  - Mitral valve calcification [None]
  - Aortic valve thickening [None]
  - Aortic valve calcification [None]
  - Pulmonary arterial pressure abnormal [None]
  - Chest discomfort [None]
  - Pulmonary mass [None]
  - Nasopharyngitis [Recovered/Resolved]
  - Diarrhoea [None]
  - Rhinorrhoea [None]
  - Hyperlactacidaemia [None]

NARRATIVE: CASE EVENT DATE: 20250101
